FAERS Safety Report 5383206-7 (Version None)
Quarter: 2007Q3

REPORT INFORMATION
  Report Type: 
  Country: None (occurrence: None)
  Receive Date: 20070710
  Receipt Date: 20070628
  Transmission Date: 20080115
  Serious: Yes (Hospitalization)
  Sender: FDA-Public Use
  Company Number: SG-PFIZER INC-2007053037

PATIENT
  Age: 60 Year
  Sex: Male

DRUGS (1)
  1. PHENYTOIN [Suspect]
     Route: 048
     Dates: start: 20070210, end: 20070322

REACTIONS (7)
  - ANGIOEDEMA [None]
  - FACE OEDEMA [None]
  - HEPATITIS [None]
  - PRURITUS [None]
  - PYREXIA [None]
  - RASH MACULO-PAPULAR [None]
  - RENAL IMPAIRMENT [None]
